FAERS Safety Report 7230384-0 (Version None)
Quarter: 2011Q1

REPORT INFORMATION
  Report Type: 
  Country: None (occurrence: None)
  Receive Date: 20110118
  Receipt Date: 20110105
  Transmission Date: 20110831
  Serious: Yes (Death, Hospitalization, Other)
  Sender: FDA-Public Use
  Company Number: CA-TYCO HEALTHCARE/MALLINCKRODT-T201100008

PATIENT
  Age: 19 Year
  Sex: Female

DRUGS (9)
  1. PAMELOR [Suspect]
     Indication: MAJOR DEPRESSION
     Dosage: 100 MG, UNK
  2. OLANZAPINE [Suspect]
     Dosage: 5 MG, UNK
  3. RISPERIDONE [Suspect]
     Indication: MAJOR DEPRESSION
     Dosage: 2 MG, BID
  4. RISPERIDONE [Suspect]
     Dosage: 1 MG, BID
  5. OLANZAPINE [Suspect]
     Indication: MAJOR DEPRESSION
     Dosage: 10 MG, UNK
  6. RISPERIDONE [Suspect]
     Dosage: 1 MG QAM AND 2 MG QPM
  7. VENLAFAXINE [Suspect]
     Indication: MAJOR DEPRESSION
     Dosage: 225 MG, UNK
  8. LOXAPINE [Suspect]
     Dosage: 25 MG, UNK
  9. DIPHENHYDRAMINE [Suspect]
     Dosage: 25 MG, UNK

REACTIONS (6)
  - HYPERPROLACTINAEMIA [None]
  - WEIGHT INCREASED [None]
  - MAJOR DEPRESSION [None]
  - PULMONARY EMBOLISM [None]
  - PSYCHOTIC DISORDER [None]
  - TREATMENT NONCOMPLIANCE [None]
